FAERS Safety Report 23251426 (Version 2)
Quarter: 2024Q2

REPORT INFORMATION
  Report Type: Spontaneous
  Country: US (occurrence: US)
  Receive Date: 20231201
  Receipt Date: 20240514
  Transmission Date: 20240716
  Serious: No
  Sender: FDA-Public Use
  Company Number: US-BAYER-2023A172055

PATIENT
  Age: 52 Year
  Sex: Female
  Weight: 58.5 kg

DRUGS (8)
  1. MIRENA [Suspect]
     Active Substance: LEVONORGESTREL
     Indication: Intra-uterine contraceptive device insertion
     Dosage: 20?G/DAY
     Route: 015
     Dates: start: 20230927, end: 20240201
  2. ADIPEX-P [Concomitant]
     Active Substance: PHENTERMINE HYDROCHLORIDE
     Dosage: TAKE 1/2 TO 1 FULL TABLET BY MOUTH IN MORNING
     Route: 048
     Dates: start: 20231127
  3. ZOLOFT [Concomitant]
     Active Substance: SERTRALINE HYDROCHLORIDE
     Dosage: TAKE 1 TABLET (100 MG TOTAL)
     Route: 048
     Dates: start: 20230606
  4. ALDACTONE [Concomitant]
     Active Substance: SPIRONOLACTONE
     Indication: Prophylaxis
     Dosage: TAKE HALF OR ONE TABLET BY MOUTH EVERY MORNING
     Route: 048
     Dates: start: 20230502
  5. VAGIFEM [Concomitant]
     Active Substance: ESTRADIOL
     Dosage: 10 ?G
     Route: 048
  6. VIVELLE [Concomitant]
     Active Substance: ESTRADIOL
     Dosage: 0.1 MG, CONT
  7. CLENPIQ [Concomitant]
     Active Substance: ANHYDROUS CITRIC ACID\MAGNESIUM OXIDE\SODIUM PICOSULFATE
  8. NP THYROID [Concomitant]
     Active Substance: LEVOTHYROXINE\LIOTHYRONINE
     Dosage: 90 MG

REACTIONS (4)
  - Device dislocation [Recovered/Resolved]
  - Abdominal pain lower [None]
  - Dyspareunia [None]
  - Vaginal discharge [None]

NARRATIVE: CASE EVENT DATE: 20231006
